FAERS Safety Report 7810117-7 (Version None)
Quarter: 2011Q4

REPORT INFORMATION
  Report Type: 
  Country: None (occurrence: None)
  Receive Date: 20111007
  Receipt Date: 20110926
  Transmission Date: 20120403
  Serious: No
  Sender: FDA-Public Use
  Company Number: B0752666A

PATIENT
  Age: 68 Year
  Sex: Male

DRUGS (1)
  1. LAMOTRIGINE [Suspect]
     Indication: TEMPORAL LOBE EPILEPSY
     Dates: start: 20080201, end: 20080501

REACTIONS (8)
  - TEMPORAL LOBE EPILEPSY [None]
  - AGGRESSION [None]
  - ABNORMAL DREAMS [None]
  - NIGHTMARE [None]
  - DRUG WITHDRAWAL SYNDROME [None]
  - CONDITION AGGRAVATED [None]
  - COMPLEX PARTIAL SEIZURES [None]
  - SLEEP DISORDER [None]
